FAERS Safety Report 20597557 (Version 1)
Quarter: 2022Q1

REPORT INFORMATION
  Report Type: Spontaneous
  Country: US (occurrence: US)
  Receive Date: 20220315
  Receipt Date: 20220315
  Transmission Date: 20220423
  Serious: No
  Sender: FDA-Public Use
  Company Number: US-PERRIGO-21US003951

PATIENT
  Age: 67 Year
  Sex: Female
  Weight: 73.469 kg

DRUGS (7)
  1. NICOTINE POLACRILEX [Suspect]
     Active Substance: NICOTINE
     Indication: Smoking cessation therapy
     Dosage: 4 MG, EVERY 1 TO 2 HOURS PRN
     Route: 002
     Dates: start: 20210313
  2. PREGABALIN [Suspect]
     Active Substance: PREGABALIN
     Indication: Neuropathy peripheral
     Dosage: 75 MG, BID
     Route: 048
  3. PREGABALIN [Suspect]
     Active Substance: PREGABALIN
     Dosage: 75 MG, TID
     Route: 048
     Dates: start: 20210313
  4. OXYGEN [Concomitant]
     Active Substance: OXYGEN
     Indication: Chronic obstructive pulmonary disease
     Dosage: UNK
     Route: 065
  5. SEROQUEL [Concomitant]
     Active Substance: QUETIAPINE FUMARATE
     Indication: Depression
     Dosage: 100 MG
     Route: 065
  6. BUDESONIDE [Concomitant]
     Active Substance: BUDESONIDE
     Indication: Colitis
     Dosage: UNK
     Route: 065
     Dates: start: 202101, end: 20210317
  7. TYLENOL WITH CODEINE [Concomitant]
     Active Substance: ACETAMINOPHEN\CODEINE PHOSPHATE
     Indication: Back pain
     Dosage: UNK
     Route: 065

REACTIONS (3)
  - Balance disorder [Unknown]
  - Dizziness [Unknown]
  - Dyspnoea [Unknown]

NARRATIVE: CASE EVENT DATE: 20210315
